FAERS Safety Report 12989281 (Version 1)
Quarter: 2016Q4

REPORT INFORMATION
  Report Type: Spontaneous
  Country: GB (occurrence: GB)
  Receive Date: 20161201
  Receipt Date: 20161201
  Transmission Date: 20170207
  Serious: Yes (Death, Other)
  Sender: FDA-Public Use
  Company Number: GB-CLINIGEN GROUP PLC/ CLINIGEN HEALTHCARE LTD-E2B_00003552

PATIENT
  Age: 36 Year
  Sex: Male

DRUGS (4)
  1. VINCRISTINE [Concomitant]
     Active Substance: VINCRISTINE
     Dates: start: 19970408, end: 19970411
  2. CARDIOXANE [Suspect]
     Active Substance: DEXRAZOXANE HYDROCHLORIDE
     Indication: PRODUCT USED FOR UNKNOWN INDICATION
     Route: 042
     Dates: start: 19970408, end: 19970411
  3. DOXORUBICIN [Concomitant]
     Active Substance: DOXORUBICIN
     Dates: start: 19970408, end: 19970411
  4. DEXAMETHASONE. [Concomitant]
     Active Substance: DEXAMETHASONE
     Dates: start: 19970408, end: 19970419

REACTIONS (4)
  - Hypotension [Unknown]
  - Necrotising fasciitis [Unknown]
  - Gas gangrene [Unknown]
  - Respiratory failure [Fatal]

NARRATIVE: CASE EVENT DATE: 19970419
